FAERS Safety Report 17138646 (Version 1)
Quarter: 2019Q4

REPORT INFORMATION
  Report Type: Spontaneous
  Country: US (occurrence: US)
  Receive Date: 20191210
  Receipt Date: 20191210
  Transmission Date: 20200122
  Serious: No
  Sender: FDA-Public Use
  Company Number: None

PATIENT
  Sex: Female

DRUGS (2)
  1. OMNARIS [Suspect]
     Active Substance: CICLESONIDE
  2. FLUNISOLIDE. [Suspect]
     Active Substance: FLUNISOLIDE

REACTIONS (1)
  - Therapy non-responder [None]
